FAERS Safety Report 14021761 (Version 2)
Quarter: 2017Q4

REPORT INFORMATION
  Report Type: Report from Study
  Country: US (occurrence: US)
  Receive Date: 20170928
  Receipt Date: 20171226
  Transmission Date: 20180321
  Serious: No
  Sender: FDA-Public Use
  Company Number: US-CLOVIS ONCOLOGY-CLO-2017-000983

PATIENT
  Sex: Female

DRUGS (1)
  1. RUBRACA [Suspect]
     Active Substance: RUCAPARIB CAMSYLATE
     Indication: OVARIAN CANCER
     Dosage: 600 MG, BID
     Route: 048

REACTIONS (12)
  - Blood glucose increased [Unknown]
  - Headache [Not Recovered/Not Resolved]
  - Blood pressure increased [Not Recovered/Not Resolved]
  - Nausea [Not Recovered/Not Resolved]
  - Dysgeusia [Unknown]
  - Blood urea abnormal [Unknown]
  - Malaise [Not Recovered/Not Resolved]
  - Blood creatinine abnormal [Unknown]
  - Alopecia [Not Recovered/Not Resolved]
  - Liver function test abnormal [Unknown]
  - Fatigue [Unknown]
  - Constipation [Unknown]
